FAERS Safety Report 8902662 (Version 1)
Quarter: 2012Q4

REPORT INFORMATION
  Report Type: 
  Country: US (occurrence: US)
  Receive Date: 20121112
  Receipt Date: 20121112
  Transmission Date: 20130627
  Serious: Yes (Other)
  Sender: FDA-Public Use
  Company Number: PHHY2012US102943

PATIENT
  Age: 44 Year
  Sex: Female

DRUGS (5)
  1. TRIAMCINOLONE [Suspect]
     Indication: LUMBAR RADICULOPATHY
     Dosage: 80 mg, UNK
     Route: 008
     Dates: start: 20100604
  2. BUPIVACAINE [Concomitant]
     Dosage: 2 DF, UNK
     Dates: start: 20100604
  3. OMNIPAQUE [Concomitant]
     Dosage: 1 DF, UNK
     Dates: start: 20100604
  4. MIDAZOLAM [Concomitant]
     Indication: SEDATION
     Dosage: 3 mg, UNK
  5. FENTANYL [Concomitant]
     Dosage: 50 ug, UNK

REACTIONS (5)
  - Vaginal haemorrhage [Recovered/Resolved]
  - Arthralgia [Recovered/Resolved]
  - Pain in extremity [Recovered/Resolved]
  - Muscle spasms [Recovered/Resolved]
  - Cyst [Recovered/Resolved]
